FAERS Safety Report 10295911 (Version 1)
Quarter: 2014Q3

REPORT INFORMATION
  Report Type: Spontaneous
  Country: US (occurrence: US)
  Receive Date: 20140710
  Receipt Date: 20140710
  Transmission Date: 20150326
  Serious: No
  Sender: FDA-Public Use
  Company Number: US-PURDUE-USA-2014-0113998

PATIENT
  Sex: Female

DRUGS (3)
  1. BUTRANS [Suspect]
     Active Substance: BUPRENORPHINE
     Indication: NECK PAIN
     Dosage: 20 MCG/HR, WEEKLY
     Route: 062
     Dates: start: 20140503
  2. CLOBETASOL 0.05% [Concomitant]
     Indication: PROPHYLAXIS
     Dosage: .05 %, WEEKLY
     Route: 061
     Dates: start: 2012
  3. BETAMETHASON                       /00008501/ [Concomitant]
     Indication: APPLICATION SITE REACTION
     Dosage: .05 %, PRN
     Route: 061
     Dates: start: 201405

REACTIONS (9)
  - Wrong technique in drug usage process [Unknown]
  - Application site exfoliation [Not Recovered/Not Resolved]
  - Product adhesion issue [Unknown]
  - Product quality issue [Unknown]
  - Application site pain [Not Recovered/Not Resolved]
  - Application site vesicles [Not Recovered/Not Resolved]
  - Application site dryness [Not Recovered/Not Resolved]
  - Application site erythema [Not Recovered/Not Resolved]
  - Application site pruritus [Not Recovered/Not Resolved]

NARRATIVE: CASE EVENT DATE: 2012
